FAERS Safety Report 6272510-6 (Version None)
Quarter: 2009Q3

REPORT INFORMATION
  Report Type: 
  Country: None (occurrence: None)
  Receive Date: 20090717
  Receipt Date: 20090707
  Transmission Date: 20100115
  Serious: Yes (Hospitalization)
  Sender: FDA-Public Use
  Company Number: FR-PFIZER INC-2009236714

PATIENT
  Age: 15 Year

DRUGS (3)
  1. LYRICA [Suspect]
     Dosage: 50 MG, 2X/DAY
     Route: 048
     Dates: start: 20090410, end: 20090416
  2. LYRICA [Suspect]
     Dosage: 100 MG, 2X/DAY
     Route: 048
     Dates: start: 20090416
  3. RIVOTRIL [Suspect]
     Dosage: UNK
     Route: 048
     Dates: start: 20090510

REACTIONS (5)
  - ATAXIA [None]
  - DYSARTHRIA [None]
  - NYSTAGMUS [None]
  - OVERDOSE [None]
  - SOMNOLENCE [None]
